FAERS Safety Report 4290412-1 (Version None)
Quarter: 2004Q1

REPORT INFORMATION
  Report Type: 
  Country: None (occurrence: None)
  Receive Date: 20040209
  Receipt Date: 20040127
  Transmission Date: 20041129
  Serious: Yes (Other)
  Sender: FDA-Public Use
  Company Number: 2004196807US

PATIENT
  Age: 67 Year
  Sex: Male

DRUGS (2)
  1. HEPARIN SODIUM INJECTION [Suspect]
     Dosage: IV
     Route: 042
  2. UROKINASE (UROKINASE) POWDER, STERILE [Suspect]

REACTIONS (3)
  - CEREBRAL INFARCTION [None]
  - DRUG INEFFECTIVE [None]
  - VASCULAR PROCEDURE COMPLICATION [None]
